FAERS Safety Report 23698001 (Version 1)
Quarter: 2024Q2

REPORT INFORMATION
  Report Type: Spontaneous
  Country: CA (occurrence: CA)
  Receive Date: 20240402
  Receipt Date: 20240402
  Transmission Date: 20240716
  Serious: Yes (Other)
  Sender: FDA-Public Use
  Company Number: CA-JNJFOC-20240379055

PATIENT
  Age: 51 Year
  Sex: Female

DRUGS (5)
  1. REMICADE [Suspect]
     Active Substance: INFLIXIMAB
     Indication: Sarcoidosis
     Route: 041
  2. REMICADE [Suspect]
     Active Substance: INFLIXIMAB
     Route: 041
  3. CLOBETASOL [Concomitant]
     Active Substance: CLOBETASOL
  4. METHOTREXATE [Concomitant]
     Active Substance: METHOTREXATE
     Indication: Sarcoidosis
  5. PREDNISOLONE [Concomitant]
     Active Substance: PREDNISOLONE

REACTIONS (5)
  - Pulmonary function test abnormal [Unknown]
  - Drug level above therapeutic [Unknown]
  - Condition aggravated [Unknown]
  - Drug ineffective [Unknown]
  - Off label use [Unknown]
